FAERS Safety Report 4601962-X (Version None)
Quarter: 2005Q1

REPORT INFORMATION
  Report Type: 
  Country: None (occurrence: None)
  Receive Date: 20050128
  Receipt Date: 20041108
  Transmission Date: 20050727
  Serious: No
  Sender: FDA-Public Use
  Company Number: TOS-000665

PATIENT

DRUGS (1)
  1. TOSTUMOMAB, IODINE I 131 TOSITUMOMAB (TOSITUMOMAB, IODINE 131 TOSITUMO [Suspect]
     Indication: NON-HODGKIN'S LYMPHOMA

REACTIONS (1)
  - UPPER RESPIRATORY TRACT INFECTION [None]
